FAERS Safety Report 24973507 (Version 3)
Quarter: 2025Q2

REPORT INFORMATION
  Report Type: Spontaneous
  Country: JP (occurrence: JP)
  Receive Date: 20250216
  Receipt Date: 20250401
  Transmission Date: 20250716
  Serious: Yes (Death, Other)
  Sender: VIIV
  Company Number: JP-VIIV HEALTHCARE-JP2025JPN018505

PATIENT

DRUGS (1)
  1. TRIUMEQ [Suspect]
     Active Substance: ABACAVIR SULFATE\DOLUTEGRAVIR SODIUM\LAMIVUDINE
     Dosage: UNK, 1D
     Route: 048
     Dates: start: 2017, end: 202502

REACTIONS (3)
  - Death [Fatal]
  - Weight decreased [Fatal]
  - Urogenital disorder [Unknown]

NARRATIVE: CASE EVENT DATE: 20250201
